FAERS Safety Report 7015840-2 (Version None)
Quarter: 2010Q3

REPORT INFORMATION
  Report Type: 
  Country: None (occurrence: None)
  Receive Date: 20100927
  Receipt Date: 20091221
  Transmission Date: 20110219
  Serious: No
  Sender: FDA-Public Use
  Company Number: US-ASTRAZENECA-2009SE25839

PATIENT
  Age: 76 Year
  Sex: Female
  Weight: 72.6 kg

DRUGS (1)
  1. ARIMIDEX [Suspect]
     Route: 048
     Dates: start: 20090701

REACTIONS (10)
  - ABDOMINAL PAIN UPPER [None]
  - ALOPECIA [None]
  - ARTHRALGIA [None]
  - BONE PAIN [None]
  - DIZZINESS [None]
  - FAECES DISCOLOURED [None]
  - HOT FLUSH [None]
  - INSOMNIA [None]
  - PRURITUS GENERALISED [None]
  - URINARY TRACT INFECTION [None]
